FAERS Safety Report 4876746-8 (Version None)
Quarter: 2006Q1

REPORT INFORMATION
  Report Type: 
  Country: None (occurrence: None)
  Receive Date: 20060110
  Receipt Date: 20050406
  Transmission Date: 20060701
  Serious: Yes (Hospitalization, Other)
  Sender: FDA-Public Use
  Company Number: US-MERCK-0504USA01021

PATIENT
  Age: 63 Year
  Sex: Male
  Weight: 76 kg

DRUGS (1)
  1. VIOXX [Suspect]
     Route: 048

REACTIONS (26)
  - ABDOMINAL PAIN UPPER [None]
  - ADVERSE EVENT [None]
  - ARRHYTHMIA SUPRAVENTRICULAR [None]
  - ARTHRALGIA [None]
  - BENIGN PROSTATIC HYPERPLASIA [None]
  - BLOOD CHOLESTEROL INCREASED [None]
  - CHEST PAIN [None]
  - CONSTIPATION [None]
  - CONTRAST MEDIA REACTION [None]
  - CORONARY ARTERY DISEASE [None]
  - ERYTHEMA [None]
  - EYE SWELLING [None]
  - GASTROINTESTINAL CARCINOMA [None]
  - GASTROINTESTINAL MOTILITY DISORDER [None]
  - GOITRE [None]
  - HEART RATE IRREGULAR [None]
  - HYPERLIPIDAEMIA [None]
  - HYPERTENSION [None]
  - HYPERTHYROIDISM [None]
  - INTESTINAL OBSTRUCTION [None]
  - LUNG NEOPLASM [None]
  - MYOCARDIAL INFARCTION [None]
  - RENAL FAILURE CHRONIC [None]
  - SHOULDER PAIN [None]
  - THROMBOLYSIS [None]
  - WEIGHT INCREASED [None]
